FAERS Safety Report 22916057 (Version 2)
Quarter: 2024Q2

REPORT INFORMATION
  Report Type: Spontaneous
  Country: US (occurrence: US)
  Receive Date: 20230907
  Receipt Date: 20240402
  Transmission Date: 20240716
  Serious: No
  Sender: FDA-Public Use
  Company Number: US-SA-SAC20230904001625

PATIENT
  Age: 46 Year
  Sex: Female

DRUGS (2)
  1. DUPIXENT [Suspect]
     Active Substance: DUPILUMAB
     Indication: Eczema
     Dosage: 600 MG, 1X
     Route: 058
     Dates: start: 20230804, end: 20230804
  2. DUPIXENT [Suspect]
     Active Substance: DUPILUMAB
     Dosage: 300MG EVERY 14 DAYS
     Route: 058
     Dates: start: 20230818

REACTIONS (5)
  - Affective disorder [Unknown]
  - Condition aggravated [Unknown]
  - Emotional disorder [Unknown]
  - Condition aggravated [Unknown]
  - Inappropriate schedule of product administration [Unknown]

NARRATIVE: CASE EVENT DATE: 20230801
